FAERS Safety Report 16961818 (Version 1)
Quarter: 2019Q4

REPORT INFORMATION
  Report Type: Spontaneous
  Country: CN (occurrence: CN)
  Receive Date: 20191025
  Receipt Date: 20191025
  Transmission Date: 20200122
  Serious: Yes (Other)
  Sender: FDA-Public Use
  Company Number: CN-PFIZER INC-2019456900

PATIENT
  Age: 32 Year
  Sex: Female
  Weight: 55 kg

DRUGS (1)
  1. MEDROL [Suspect]
     Active Substance: METHYLPREDNISOLONE
     Indication: THERAPEUTIC PROCEDURE
     Dosage: 14 MG, 1X/DAY
     Route: 048
     Dates: start: 20190917, end: 20190920

REACTIONS (4)
  - Hypokalaemia [Recovering/Resolving]
  - Hyperosmolar state [Recovering/Resolving]
  - Steroid diabetes [Recovering/Resolving]
  - Hyponatraemia [Recovering/Resolving]

NARRATIVE: CASE EVENT DATE: 20190917
